FAERS Safety Report 23196994 (Version 1)
Quarter: 2023Q4

REPORT INFORMATION
  Report Type: Spontaneous
  Country: US (occurrence: None)
  Receive Date: 20231117
  Receipt Date: 20231117
  Transmission Date: 20240109
  Serious: Yes (Hospitalization)
  Sender: FDA-Public Use
  Company Number: None

PATIENT
  Age: 3 Year
  Sex: Female

DRUGS (15)
  1. DEFEROXAMINE [Suspect]
     Active Substance: DEFEROXAMINE MESYLATE
     Indication: Haemochromatosis
     Dosage: OTHER FREQUENCY : 12HRS7DAYSAWK;?
     Route: 058
     Dates: start: 20230624
  2. DEEP SEA SPR 0.65% [Concomitant]
  3. DIPHENHYDRAMINE LIQ [Concomitant]
  4. DIPHENHYDRAMINE [Concomitant]
     Active Substance: DIPHENHYDRAMINE
  5. EPINEPHRINE [Concomitant]
  6. FAMOTIDINE SUS [Concomitant]
  7. HEP LOCK 10 U/ML SYR [Concomitant]
  8. HEP LOCK 100 U/ML 5ML/12/ML SYR [Concomitant]
  9. MIRALAX POW 3350 NF [Concomitant]
  10. PREDNISONE [Concomitant]
     Active Substance: PREDNISONE
  11. SOD CHL 0.9% 250 ML/BAG [Concomitant]
  12. SOD CHL 0.9% 1000 ML/BAG [Concomitant]
  13. SOD CHL 0.9%STRL FLSH 10ML/SYR [Concomitant]
  14. STERILE WATER SDV (10ML=1VL) [Concomitant]
  15. STERILEWATER SDV LF (10ML=1VL) [Concomitant]

REACTIONS (2)
  - Therapy interrupted [None]
  - Hospitalisation [None]

NARRATIVE: CASE EVENT DATE: 20231107
